FAERS Safety Report 6149451-8 (Version None)
Quarter: 2009Q2

REPORT INFORMATION
  Report Type: 
  Country: None (occurrence: None)
  Receive Date: 20090409
  Receipt Date: 20090219
  Transmission Date: 20091009
  Serious: Yes (Other)
  Sender: FDA-Public Use
  Company Number: AT-CELGENEUS-009-21880-09031252

PATIENT
  Sex: Female

DRUGS (7)
  1. REVLIMID [Suspect]
     Indication: MULTIPLE MYELOMA
     Route: 048
     Dates: start: 20080117
  2. REVLIMID [Suspect]
     Route: 048
     Dates: start: 20070913
  3. REVLIMID [Suspect]
     Route: 048
     Dates: start: 20060901, end: 20070501
  4. DEXAMETHASONE 1.5MG TAB [Suspect]
     Indication: MULTIPLE MYELOMA
     Route: 048
     Dates: start: 20080117
  5. DEXAMETHASONE 1.5MG TAB [Suspect]
     Route: 048
     Dates: start: 20070913
  6. DEXAMETHASONE 1.5MG TAB [Suspect]
     Route: 048
     Dates: start: 20060901, end: 20070501
  7. ACETYLSALICYLIC ACID SRT [Concomitant]
     Indication: THROMBOSIS PROPHYLAXIS

REACTIONS (4)
  - DISEASE PROGRESSION [None]
  - MUCOSAL INFLAMMATION [None]
  - NEUTROPENIA [None]
  - PNEUMONIA [None]
